FAERS Safety Report 24080085 (Version 4)
Quarter: 2024Q3

REPORT INFORMATION
  Report Type: Spontaneous
  Country: JP (occurrence: JP)
  Receive Date: 20240711
  Receipt Date: 20240829
  Transmission Date: 20241016
  Serious: Yes (Death, Other)
  Sender: ABBVIE
  Company Number: None

PATIENT
  Age: 82 Year
  Sex: Female
  Weight: 35 kg

DRUGS (10)
  1. BOTOX [Suspect]
     Active Substance: ONABOTULINUMTOXINA
     Indication: Muscle spasms
     Dosage: TIME INTERVAL: AS NECESSARY: 200 IU
     Route: 030
     Dates: start: 20240627, end: 20240627
  2. SENNOSIDES [Concomitant]
     Active Substance: SENNOSIDES
     Indication: Constipation
     Dosage: 12 MG, 1D (BEFORE BEDTIME)
     Route: 065
     Dates: start: 20240626, end: 20240705
  3. OLANZAPINE [Concomitant]
     Active Substance: OLANZAPINE
     Indication: Schizophrenia
     Dosage: 5 MG, 1D (BEFORE BEDTIME)
     Route: 065
     Dates: start: 20240626, end: 20240705
  4. POLAPREZINC [Concomitant]
     Active Substance: POLAPREZINC
     Indication: Gastritis
     Dosage: 75 MG, 1D (AFTER DINNER)
     Route: 065
     Dates: start: 20240626, end: 20240705
  5. AMBROXOL HYDROCHLORIDE [Concomitant]
     Active Substance: AMBROXOL HYDROCHLORIDE
     Indication: Bronchitis
     Dosage: 45 MG, TID (AFTER BREAKFAST, LUNCH AND DINNER)
     Route: 050
     Dates: start: 20240626, end: 20240705
  6. LEVETIRACETAM [Concomitant]
     Active Substance: LEVETIRACETAM
     Indication: Epilepsy
     Dosage: 500 MG, BID (AFTER BREAKFAST AND DINNER)
     Route: 065
     Dates: start: 20240626, end: 20240705
  7. BELSOMRA [Concomitant]
     Active Substance: SUVOREXANT
     Indication: Sleep disorder
     Dosage: 15 MG, 1D (BEFORE BEDTIME)
     Route: 050
     Dates: start: 20240626, end: 20240705
  8. Bisoprolol fumarate dsep [Concomitant]
     Indication: Product used for unknown indication
     Dosage: 1.25 MG, 1D (AFTER DINNER)
     Route: 065
     Dates: start: 20240626
  9. SPIRONOLACTONE [Concomitant]
     Active Substance: SPIRONOLACTONE
     Indication: Product used for unknown indication
     Dosage: 12.5 MG, 1D (AFTER BREAKFAST)
     Route: 065
     Dates: start: 20240626
  10. EDOXABAN TOSYLATE [Concomitant]
     Active Substance: EDOXABAN TOSYLATE
     Indication: Product used for unknown indication
     Dosage: 30 MG, 1D (AFTER BREAKFAST)
     Route: 065
     Dates: start: 20240626

REACTIONS (12)
  - Septic shock [Fatal]
  - Pneumonia [Fatal]
  - Vomiting [Recovering/Resolving]
  - Melaena [Recovered/Resolved]
  - Gastrointestinal haemorrhage [Recovering/Resolving]
  - Diverticulitis [Recovered/Resolved]
  - Sepsis [Fatal]
  - Multiple organ dysfunction syndrome [Fatal]
  - Blood pressure decreased [Recovered/Resolved]
  - Diverticulum intestinal haemorrhagic [Recovered/Resolved]
  - Atrial fibrillation [Not Recovered/Not Resolved]
  - Cardiac failure [Fatal]

NARRATIVE: CASE EVENT DATE: 20240628
